FAERS Safety Report 5581597-5 (Version None)
Quarter: 2008Q1

REPORT INFORMATION
  Report Type: 
  Country: None (occurrence: None)
  Receive Date: 20080104
  Receipt Date: 20071228
  Transmission Date: 20080703
  Serious: Yes (Hospitalization, Other)
  Sender: FDA-Public Use
  Company Number: US-AVENTIS-200718907US

PATIENT
  Sex: Male

DRUGS (12)
  1. LOVENOX [Suspect]
     Indication: ACUTE CORONARY SYNDROME
     Route: 058
     Dates: start: 20071114, end: 20071114
  2. PROTEINASE INHIBITORS [Suspect]
     Indication: ACUTE CORONARY SYNDROME
     Dosage: DOSE: UNK
     Route: 048
     Dates: start: 20071114
  3. ASPIRIN [Suspect]
     Indication: ACUTE CORONARY SYNDROME
     Route: 048
     Dates: start: 20071114
  4. PLAVIX [Suspect]
     Indication: ACUTE CORONARY SYNDROME
     Route: 048
     Dates: start: 20071115
  5. ASPIRIN [Concomitant]
     Route: 048
     Dates: start: 20070928, end: 20071114
  6. PRAVACHOL [Concomitant]
     Route: 048
     Dates: start: 20070928
  7. LOPRESSOR [Concomitant]
     Indication: HYPERTENSION
     Route: 048
     Dates: start: 20070928
  8. LISINOPRIL [Concomitant]
     Indication: HYPERTENSION
     Route: 048
     Dates: start: 20070928
  9. LIPITOR [Concomitant]
     Route: 048
     Dates: start: 20071114, end: 20071114
  10. PRILOSEC                           /00661201/ [Concomitant]
     Route: 048
     Dates: start: 20071114, end: 20071116
  11. KEFLEX [Concomitant]
     Route: 048
     Dates: start: 20071115, end: 20071115
  12. ANGIOMAX [Concomitant]
     Route: 042
     Dates: start: 20071114, end: 20071114

REACTIONS (2)
  - EPISTAXIS [None]
  - SYNCOPE [None]
